FAERS Safety Report 19994185 (Version 2)
Quarter: 2021Q4

REPORT INFORMATION
  Report Type: Spontaneous
  Country: US (occurrence: US)
  Receive Date: 20211026
  Receipt Date: 20211101
  Transmission Date: 20220303
  Serious: No
  Sender: FDA-Public Use
  Company Number: US-BEH-2021136934

PATIENT
  Sex: Female

DRUGS (18)
  1. HIZENTRA [Suspect]
     Active Substance: HUMAN IMMUNOGLOBULIN G
     Indication: Selective IgG subclass deficiency
     Dosage: 6 GRAM, QW
     Route: 058
     Dates: start: 202110
  2. ACETAMINOPHEN [Concomitant]
     Active Substance: ACETAMINOPHEN
  3. AMBIEN [Concomitant]
     Active Substance: ZOLPIDEM TARTRATE
  4. ARICEPT [Concomitant]
     Active Substance: DONEPEZIL HYDROCHLORIDE
  5. CLARITIN [Concomitant]
     Active Substance: LORATADINE
  6. FLUTICASONE [Concomitant]
     Active Substance: FLUTICASONE
  7. LORAZEPAM [Concomitant]
     Active Substance: LORAZEPAM
  8. MELOXICAM [Concomitant]
     Active Substance: MELOXICAM
  9. OXYBUTYNIN [Concomitant]
     Active Substance: OXYBUTYNIN
  10. PANTOPRAZOLE [Concomitant]
     Active Substance: PANTOPRAZOLE
  11. PRISTIQ EXTENDED-RELEASE [Concomitant]
     Active Substance: DESVENLAFAXINE SUCCINATE
  12. ROPINIROLE [Concomitant]
     Active Substance: ROPINIROLE
  13. SINGULAIR [Concomitant]
     Active Substance: MONTELUKAST SODIUM
  14. SYMBICORT [Concomitant]
     Active Substance: BUDESONIDE\FORMOTEROL FUMARATE DIHYDRATE
  15. SYNTHROID [Concomitant]
     Active Substance: LEVOTHYROXINE SODIUM
  16. VISTARIL (HYDROXYZINE HYDROCHLORIDE) [Concomitant]
     Active Substance: HYDROXYZINE HYDROCHLORIDE
  17. VOLTAREN [Concomitant]
     Active Substance: DICLOFENAC SODIUM
  18. ZETIA [Concomitant]
     Active Substance: EZETIMIBE

REACTIONS (1)
  - Injection site pain [Not Recovered/Not Resolved]
